FAERS Safety Report 8574615-3 (Version None)
Quarter: 2012Q3

REPORT INFORMATION
  Report Type: 
  Country: None (occurrence: None)
  Receive Date: 20120807
  Receipt Date: 20120725
  Transmission Date: 20120928
  Serious: Yes (Life-Threatening, Hospitalization)
  Sender: FDA-Public Use
  Company Number: NL-AMGEN-NLDSP2012047114

PATIENT
  Sex: Female

DRUGS (6)
  1. SIMVASTATIN [Suspect]
     Dosage: UNK
  2. MELOXICAM [Concomitant]
     Dosage: UNK
  3. ASCAL                              /00800002/ [Concomitant]
     Dosage: UNK
  4. BETA BLOCKING AGENTS [Concomitant]
     Dosage: UNK
  5. ANTIHYPERTENSIVES [Concomitant]
     Dosage: UNK
  6. ENBREL [Suspect]
     Indication: PSORIATIC ARTHROPATHY
     Dosage: 50 MG, WEEKLY
     Dates: start: 20080101

REACTIONS (2)
  - RHABDOMYOLYSIS [None]
  - RENAL IMPAIRMENT [None]
